FAERS Safety Report 13086865 (Version 1)
Quarter: 2017Q1

REPORT INFORMATION
  Report Type: Spontaneous
  Country: CN (occurrence: CN)
  Receive Date: 20170104
  Receipt Date: 20170104
  Transmission Date: 20170428
  Serious: Yes (Other)
  Sender: FDA-Public Use
  Company Number: CN-ROCHE-1874532

PATIENT
  Age: 54 Year
  Sex: Male
  Weight: 47 kg

DRUGS (2)
  1. XELODA [Suspect]
     Active Substance: CAPECITABINE
     Indication: GASTRIC CANCER
     Route: 048
     Dates: start: 20160809, end: 20160815
  2. XELODA [Suspect]
     Active Substance: CAPECITABINE
     Dosage: 1.5G FOR ONCE, 1G FOR THE ANOTHER
     Route: 048
     Dates: start: 20160816, end: 20160817

REACTIONS (1)
  - Hepatic function abnormal [Recovering/Resolving]

NARRATIVE: CASE EVENT DATE: 20160817
